FAERS Safety Report 23967381 (Version 1)
Quarter: 2024Q2

REPORT INFORMATION
  Report Type: Spontaneous
  Country: US (occurrence: US)
  Receive Date: 20240612
  Receipt Date: 20240612
  Transmission Date: 20240716
  Serious: No
  Sender: FDA-Public Use
  Company Number: US-AstraZeneca-CH-00641319A

PATIENT
  Sex: Male

DRUGS (2)
  1. SOLIRIS [Suspect]
     Active Substance: ECULIZUMAB
     Indication: Product used for unknown indication
     Dosage: UNK
     Route: 065
  2. VOYDEYA [Suspect]
     Active Substance: DANICOPAN
     Indication: Myelodysplastic syndrome
     Dosage: 150 MILLIGRAM, TID
     Route: 048
     Dates: start: 20240515

REACTIONS (1)
  - Disorientation [Unknown]
